FAERS Safety Report 4565528-2 (Version None)
Quarter: 2005Q1

REPORT INFORMATION
  Report Type: 
  Country: None (occurrence: None)
  Receive Date: 20050131
  Receipt Date: 20050124
  Transmission Date: 20050727
  Serious: Yes (Death)
  Sender: FDA-Public Use
  Company Number: DE-GLAXOSMITHKLINE-B0365996A

PATIENT
  Age: 48 Year
  Sex: Female

DRUGS (2)
  1. TOPOTECAN [Suspect]
     Indication: OVARIAN CANCER
     Route: 042
  2. CARBOPLATIN [Suspect]
     Indication: OVARIAN CANCER
     Route: 042

REACTIONS (3)
  - CARDIOPULMONARY FAILURE [None]
  - LEUKOPENIA [None]
  - PNEUMONIA [None]
